FAERS Safety Report 22286103 (Version 1)
Quarter: 2023Q2

REPORT INFORMATION
  Report Type: Spontaneous
  Country: US (occurrence: US)
  Receive Date: 20230505
  Receipt Date: 20230505
  Transmission Date: 20230722
  Serious: No
  Sender: FDA-Public Use
  Company Number: US-AMGEN-USASP2023076813

PATIENT
  Sex: Male

DRUGS (1)
  1. NPLATE [Suspect]
     Active Substance: ROMIPLOSTIM
     Indication: Immune thrombocytopenia
     Dosage: 165 MILLIGRAM, TWICW
     Route: 065
     Dates: start: 20221105

REACTIONS (6)
  - Tinnitus [Unknown]
  - Blood pressure abnormal [Unknown]
  - Confusional state [Unknown]
  - Wrong technique in product usage process [Unknown]
  - Platelet count abnormal [Unknown]
  - Headache [Unknown]

NARRATIVE: CASE EVENT DATE: 20221101
